FAERS Safety Report 11792000 (Version 3)
Quarter: 2015Q4

REPORT INFORMATION
  Report Type: Spontaneous
  Country: None (occurrence: US)
  Receive Date: 20151201
  Receipt Date: 20151215
  Transmission Date: 20160305
  Serious: Yes (Hospitalization)
  Sender: FDA-Public Use
  Company Number: US-RARE DISEASE THERAPEUTICS, INC.-1044879

PATIENT
  Age: 8 Year
  Sex: Male
  Weight: 16 kg

DRUGS (6)
  1. LEUCOVORIN CALCIUM. [Concomitant]
     Active Substance: LEUCOVORIN CALCIUM
  2. KEPPRA [Concomitant]
     Active Substance: LEVETIRACETAM
  3. CYSTADANE [Suspect]
     Active Substance: BETAINE
     Indication: VITAMIN B12 DEFICIENCY
     Dates: start: 20141216
  4. MIRALAX [Concomitant]
     Active Substance: POLYETHYLENE GLYCOL 3350
  5. LEVOCARNITINE. [Concomitant]
     Active Substance: LEVOCARNITINE
  6. HYDROXOCOBALAMIN ACETATE. [Concomitant]
     Active Substance: HYDROXOCOBALAMIN ACETATE

REACTIONS (2)
  - Overdose [Unknown]
  - Gastroenteritis viral [Unknown]
